FAERS Safety Report 6522978-2 (Version None)
Quarter: 2009Q4

REPORT INFORMATION
  Report Type: 
  Country: None (occurrence: None)
  Receive Date: 20091230
  Receipt Date: 20091217
  Transmission Date: 20100525
  Serious: Yes (Congenital Anomaly)
  Sender: FDA-Public Use
  Company Number: GB-WATSON-2009-11021

PATIENT
  Age: 40 Week
  Sex: Male
  Weight: 2.3 kg

DRUGS (4)
  1. LAMOTRIGINE (WATSON LABORATORIES) [Suspect]
     Indication: EPILEPSY
     Dosage: 550 MG, DAILY
     Route: 064
  2. TOPIRAMATE [Suspect]
     Indication: EPILEPSY
     Dosage: 800 MG, DAILY
     Route: 064
  3. CLOBAZAM [Suspect]
     Indication: EPILEPSY
     Dosage: 10 MG, DAILY
     Route: 065
  4. VIGABATRIN [Suspect]
     Indication: EPILEPSY
     Dosage: 1000 MG, DAILY
     Route: 065

REACTIONS (1)
  - PENIS DISORDER [None]
